FAERS Safety Report 8419180-6 (Version None)
Quarter: 2012Q2

REPORT INFORMATION
  Report Type: 
  Country: None (occurrence: None)
  Receive Date: 20120601
  Receipt Date: 20120510
  Transmission Date: 20120825
  Serious: Yes (Other)
  Sender: FDA-Public Use
  Company Number: US-20120022

PATIENT
  Age: 34 Year
  Sex: Male

DRUGS (4)
  1. LIPIODOL (ETHIODIZED OIL) (ETHIODIZED OIL) [Suspect]
     Indication: VARICOSE VEIN
  2. LIPIODOL (ETHIODIZED OIL) (ETHIODIZED OIL) [Suspect]
     Indication: BALLOON-OCCLUDED RETROGRADE TRANSVENOUS OBLITERATION
  3. LIPIODOL (ETHIODIZED OIL) (ETHIODIZED OIL) [Suspect]
     Indication: THERAPEUTIC EMBOLISATION
  4. SOTRADECOL (SODIUM TETRADECYL SODIUM) (SODIUM TETRADECYL SODIUM) [Concomitant]

REACTIONS (3)
  - ABDOMINAL PAIN UPPER [None]
  - SPLENOMEGALY [None]
  - CONDITION AGGRAVATED [None]
